FAERS Safety Report 8191881-7 (Version None)
Quarter: 2012Q1

REPORT INFORMATION
  Report Type: 
  Country: None (occurrence: None)
  Receive Date: 20120307
  Receipt Date: 20120227
  Transmission Date: 20120608
  Serious: Yes (Other)
  Sender: FDA-Public Use
  Company Number: PHHY2012PL016673

PATIENT
  Sex: Female

DRUGS (5)
  1. BISOPROLOL FUMARATE [Concomitant]
     Dosage: 2.5 MG, UNK
  2. PILOCARD [Concomitant]
     Dosage: 150 MG, UNK
  3. PULMICORT [Concomitant]
  4. EXELON [Suspect]
     Indication: DEMENTIA ALZHEIMER'S TYPE
     Dosage: 12 MG
     Route: 048
     Dates: start: 20110616, end: 20111104
  5. ATROVENT [Concomitant]

REACTIONS (3)
  - ASTHMA [None]
  - DYSPNOEA [None]
  - BRONCHIAL OBSTRUCTION [None]
